FAERS Safety Report 15720365 (Version 1)
Quarter: 2018Q4

REPORT INFORMATION
  Report Type: Spontaneous
  Country: AR (occurrence: AR)
  Receive Date: 20181213
  Receipt Date: 20181213
  Transmission Date: 20190205
  Serious: Yes (Other)
  Sender: FDA-Public Use
  Company Number: AR-SA-2018SA338001

PATIENT
  Age: 52 Year
  Sex: Female

DRUGS (1)
  1. TERIFLUNOMIDE. [Suspect]
     Active Substance: TERIFLUNOMIDE
     Indication: MULTIPLE SCLEROSIS
     Dosage: UNK

REACTIONS (3)
  - Pustular psoriasis [Recovered/Resolved]
  - Rash erythematous [Recovered/Resolved]
  - Exfoliative rash [Recovered/Resolved]
